FAERS Safety Report 4962853-8 (Version None)
Quarter: 2006Q1

REPORT INFORMATION
  Report Type: 
  Country: None (occurrence: None)
  Receive Date: 20060331
  Receipt Date: 20060323
  Transmission Date: 20060701
  Serious: Yes (Death, Hospitalization)
  Sender: FDA-Public Use
  Company Number: HQWYE495023MAR06

PATIENT
  Age: 79 Year
  Sex: Male

DRUGS (7)
  1. CORDARONE [Suspect]
     Indication: HYPERTENSIVE HEART DISEASE
     Dosage: 200 MG 1X PER 1 DAY ORAL
     Route: 048
     Dates: end: 20051022
  2. VALSARTAN [Concomitant]
  3. EUPPRESSYL (URAPIDIL) [Concomitant]
  4. PLAVIX [Concomitant]
  5. ATARAX [Concomitant]
  6. POTASSIUM CHLORIDE [Concomitant]
  7. SYMBICORT (BUDESONIDE/FORMOTEROL FUMARATE) [Concomitant]

REACTIONS (11)
  - BLOOD CHLORIDE DECREASED [None]
  - BLOOD PH INCREASED [None]
  - BLOOD PRESSURE INCREASED [None]
  - CONDITION AGGRAVATED [None]
  - HAEMOGLOBIN DECREASED [None]
  - MAJOR DEPRESSION [None]
  - OXYGEN SATURATION DECREASED [None]
  - PNEUMOCYSTIS JIROVECI PNEUMONIA [None]
  - PNEUMONITIS [None]
  - PROTEIN TOTAL DECREASED [None]
  - RESPIRATORY FAILURE [None]
